FAERS Safety Report 9172937 (Version 1)
Quarter: 2013Q1

REPORT INFORMATION
  Report Type: Spontaneous
  Country: US (occurrence: US)
  Receive Date: 20130320
  Receipt Date: 20130320
  Transmission Date: 20140127
  Serious: Yes (Other)
  Sender: FDA-Public Use
  Company Number: US-AMGEN-USASP2013015167

PATIENT
  Age: 77 Year
  Sex: Female
  Weight: 74.56 kg

DRUGS (3)
  1. NEULASTA [Suspect]
     Indication: PRODUCT USED FOR UNKNOWN INDICATION
     Dosage: 6 MG, X 1 (DAY 4)
     Route: 058
     Dates: start: 20130222, end: 20130222
  2. CISPLATIN [Concomitant]
     Indication: BLADDER CANCER
     Dosage: 109 MG, DAY 1
     Route: 042
     Dates: start: 20130219, end: 20130219
  3. ETOPOSIDE [Concomitant]
     Indication: BLADDER CANCER
     Dosage: 218 MG, DAY 3
     Route: 042
     Dates: start: 20130219, end: 20130221

REACTIONS (2)
  - Neutropenia [Recovered/Resolved]
  - Drug ineffective [Unknown]
